FAERS Safety Report 6420356-8 (Version None)
Quarter: 2009Q4

REPORT INFORMATION
  Report Type: 
  Country: None (occurrence: None)
  Receive Date: 20091029
  Receipt Date: 20091022
  Transmission Date: 20100525
  Serious: Yes (Other)
  Sender: FDA-Public Use
  Company Number: FR-B.I. PHARMACEUTICALS,INC./RIDGEFIELD-2009-FF-00724FF

PATIENT
  Sex: Male

DRUGS (3)
  1. SIFROL [Suspect]
     Indication: PARKINSON'S DISEASE
     Dosage: 2.1 MG
     Route: 048
     Dates: start: 20060401
  2. SINEMET [Concomitant]
     Indication: PARKINSON'S DISEASE
     Dosage: 600 MG
     Route: 048
  3. PAROXETINE [Concomitant]
     Indication: PANIC ATTACK
     Dosage: 20 MG
     Route: 048

REACTIONS (3)
  - ECONOMIC PROBLEM [None]
  - HYPERSEXUALITY [None]
  - PSYCHOSEXUAL DISORDER [None]
